FAERS Safety Report 7909381 (Version 4)
Quarter: 2012Q4

REPORT INFORMATION
  Report Type: 
  Country: US (occurrence: US)
  Receive Date: 20110421
  Receipt Date: 20121221
  Transmission Date: 20130627
  Serious: No
  Sender: FDA-Public Use
  Company Number: US-ASTRAZENECA-2010SE13792

PATIENT
  Age: 48 Year
  Sex: Female

DRUGS (2)
  1. TOPROL XL [Suspect]
     Route: 048
  2. METOPROLOL [Suspect]
     Dosage: GENERIC
     Route: 048

REACTIONS (10)
  - Angina pectoris [Unknown]
  - Feeling abnormal [Unknown]
  - Malaise [Unknown]
  - Dysphonia [Unknown]
  - Malaise [Unknown]
  - Hypertension [Unknown]
  - Cardiac disorder [Unknown]
  - Chest discomfort [Unknown]
  - Dizziness [Unknown]
  - Drug dose omission [Unknown]
